FAERS Safety Report 7814803-4 (Version None)
Quarter: 2011Q4

REPORT INFORMATION
  Report Type: 
  Country: None (occurrence: None)
  Receive Date: 20111014
  Receipt Date: 20110929
  Transmission Date: 20120403
  Serious: Yes (Other)
  Sender: FDA-Public Use
  Company Number: DE-ROCHE-801907

PATIENT
  Sex: Female
  Weight: 64 kg

DRUGS (11)
  1. HERCEPTIN [Suspect]
     Indication: METASTATIC GASTRIC CANCER
     Route: 042
     Dates: start: 20090806, end: 20110526
  2. FLUOROURACIL [Concomitant]
     Indication: METASTATIC GASTRIC CANCER
     Dates: start: 20090201, end: 20100101
  3. DOCETAXEL [Concomitant]
     Indication: BREAST CANCER METASTATIC
     Dates: start: 20090201, end: 20100101
  4. IRINOTECAN HCL [Concomitant]
     Indication: BREAST CANCER METASTATIC
     Dates: start: 20110201, end: 20110501
  5. LEUCOVORIN CALCIUM [Concomitant]
     Indication: BREAST CANCER METASTATIC
     Dates: start: 20090201, end: 20100101
  6. OXALIPLATIN [Concomitant]
     Indication: BREAST CANCER METASTATIC
     Dates: start: 20090201, end: 20090701
  7. DOCETAXEL [Concomitant]
     Dates: start: 20101101, end: 20110101
  8. OXALIPLATIN [Concomitant]
     Dates: start: 20100901, end: 20110501
  9. HERCEPTIN [Suspect]
  10. FLUOROURACIL [Concomitant]
     Dates: start: 20100901, end: 20110501
  11. LEUCOVORIN CALCIUM [Concomitant]
     Dates: start: 20100901, end: 20110501

REACTIONS (3)
  - BLINDNESS [None]
  - METASTASES TO CENTRAL NERVOUS SYSTEM [None]
  - OPTIC NEURITIS [None]
